FAERS Safety Report 25927055 (Version 1)
Quarter: 2025Q4

REPORT INFORMATION
  Report Type: Spontaneous
  Country: EU (occurrence: EU)
  Receive Date: 20251015
  Receipt Date: 20251015
  Transmission Date: 20260118
  Serious: Yes (Hospitalization)
  Sender: MYLAN
  Company Number: None

PATIENT
  Age: 87 Year
  Sex: Male
  Weight: 40 kg

DRUGS (36)
  1. PANTOPRAZOLE [Suspect]
     Active Substance: PANTOPRAZOLE
     Indication: Product used for unknown indication
     Dosage: 40 MILLIGRAM, QD
     Dates: end: 20250918
  2. PANTOPRAZOLE [Suspect]
     Active Substance: PANTOPRAZOLE
     Dosage: 40 MILLIGRAM, QD
     Route: 048
     Dates: end: 20250918
  3. PANTOPRAZOLE [Suspect]
     Active Substance: PANTOPRAZOLE
     Dosage: 40 MILLIGRAM, QD
     Route: 048
     Dates: end: 20250918
  4. PANTOPRAZOLE [Suspect]
     Active Substance: PANTOPRAZOLE
     Dosage: 40 MILLIGRAM, QD
     Dates: end: 20250918
  5. ACETAMINOPHEN [Suspect]
     Active Substance: ACETAMINOPHEN
     Indication: Pain
     Dosage: 500 MILLIGRAM
  6. ACETAMINOPHEN [Suspect]
     Active Substance: ACETAMINOPHEN
     Dosage: 500 MILLIGRAM
     Route: 048
  7. ACETAMINOPHEN [Suspect]
     Active Substance: ACETAMINOPHEN
     Dosage: 500 MILLIGRAM
     Route: 048
  8. ACETAMINOPHEN [Suspect]
     Active Substance: ACETAMINOPHEN
     Dosage: 500 MILLIGRAM
  9. DEGARELIX [Suspect]
     Active Substance: DEGARELIX
     Indication: Prostate cancer
     Dosage: 80 MILLIGRAM, QD
     Dates: start: 2025, end: 20250918
  10. DEGARELIX [Suspect]
     Active Substance: DEGARELIX
     Dosage: 80 MILLIGRAM, QD
     Route: 058
     Dates: start: 2025, end: 20250918
  11. DEGARELIX [Suspect]
     Active Substance: DEGARELIX
     Dosage: 80 MILLIGRAM, QD
     Route: 058
     Dates: start: 2025, end: 20250918
  12. DEGARELIX [Suspect]
     Active Substance: DEGARELIX
     Dosage: 80 MILLIGRAM, QD
     Dates: start: 2025, end: 20250918
  13. OXAZEPAM [Suspect]
     Active Substance: OXAZEPAM
     Indication: Mixed anxiety and depressive disorder
     Dosage: 5 MILLIGRAM, QD
  14. OXAZEPAM [Suspect]
     Active Substance: OXAZEPAM
     Dosage: 5 MILLIGRAM, QD
     Route: 048
  15. OXAZEPAM [Suspect]
     Active Substance: OXAZEPAM
     Dosage: 5 MILLIGRAM, QD
     Route: 048
  16. OXAZEPAM [Suspect]
     Active Substance: OXAZEPAM
     Dosage: 5 MILLIGRAM, QD
  17. SODIUM FEREDETATE [Suspect]
     Active Substance: SODIUM FEREDETATE
     Indication: Anaemia
     Dosage: 24 MILLILITER, QD
  18. SODIUM FEREDETATE [Suspect]
     Active Substance: SODIUM FEREDETATE
     Dosage: 24 MILLILITER, QD
     Route: 048
  19. SODIUM FEREDETATE [Suspect]
     Active Substance: SODIUM FEREDETATE
     Dosage: 24 MILLILITER, QD
     Route: 048
  20. SODIUM FEREDETATE [Suspect]
     Active Substance: SODIUM FEREDETATE
     Dosage: 24 MILLILITER, QD
  21. ZOPICLONE [Suspect]
     Active Substance: ZOPICLONE
     Indication: Insomnia
     Dosage: 3.75 MILLIGRAM, QD
     Dates: end: 20250917
  22. ZOPICLONE [Suspect]
     Active Substance: ZOPICLONE
     Dosage: 3.75 MILLIGRAM, QD
     Route: 048
     Dates: end: 20250917
  23. ZOPICLONE [Suspect]
     Active Substance: ZOPICLONE
     Dosage: 3.75 MILLIGRAM, QD
     Route: 048
     Dates: end: 20250917
  24. ZOPICLONE [Suspect]
     Active Substance: ZOPICLONE
     Dosage: 3.75 MILLIGRAM, QD
     Dates: end: 20250917
  25. MORPHINE SULFATE [Suspect]
     Active Substance: MORPHINE SULFATE
     Indication: Pain
     Dosage: 1 DOSAGE FORM, QD
  26. MORPHINE SULFATE [Suspect]
     Active Substance: MORPHINE SULFATE
     Dosage: 1 DOSAGE FORM, QD
     Route: 048
  27. MORPHINE SULFATE [Suspect]
     Active Substance: MORPHINE SULFATE
     Dosage: 1 DOSAGE FORM, QD
     Route: 048
  28. MORPHINE SULFATE [Suspect]
     Active Substance: MORPHINE SULFATE
     Dosage: 1 DOSAGE FORM, QD
  29. POLYETHYLENE GLYCOLS [Concomitant]
     Active Substance: POLYETHYLENE GLYCOLS
     Dosage: 1 DOSAGE FORM, QD
     Dates: end: 20250918
  30. POLYETHYLENE GLYCOLS [Concomitant]
     Active Substance: POLYETHYLENE GLYCOLS
     Dosage: 1 DOSAGE FORM, QD
     Route: 048
     Dates: end: 20250918
  31. POLYETHYLENE GLYCOLS [Concomitant]
     Active Substance: POLYETHYLENE GLYCOLS
     Dosage: 1 DOSAGE FORM, QD
     Route: 048
     Dates: end: 20250918
  32. POLYETHYLENE GLYCOLS [Concomitant]
     Active Substance: POLYETHYLENE GLYCOLS
     Dosage: 1 DOSAGE FORM, QD
     Dates: end: 20250918
  33. APIXABAN [Concomitant]
     Active Substance: APIXABAN
     Dosage: UNK
  34. APIXABAN [Concomitant]
     Active Substance: APIXABAN
     Dosage: UNK
     Route: 048
  35. APIXABAN [Concomitant]
     Active Substance: APIXABAN
     Dosage: UNK
     Route: 048
  36. APIXABAN [Concomitant]
     Active Substance: APIXABAN
     Dosage: UNK

REACTIONS (1)
  - Cerebrovascular accident [Not Recovered/Not Resolved]

NARRATIVE: CASE EVENT DATE: 20250919
